FAERS Safety Report 9397242 (Version 3)
Quarter: 2014Q1

REPORT INFORMATION
  Report Type: Report from Study
  Country: KR (occurrence: KR)
  Receive Date: 20130712
  Receipt Date: 20140321
  Transmission Date: 20141002
  Serious: Yes (Hospitalization, Other)
  Sender: FDA-Public Use
  Company Number: KR-JNJFOC-20130701993

PATIENT
  Age: 11 Year
  Sex: Female
  Weight: 30.5 kg

DRUGS (29)
  1. REMICADE [Suspect]
     Indication: CROHN^S DISEASE
     Route: 042
     Dates: start: 20130619, end: 20130619
  2. REMICADE [Suspect]
     Indication: CROHN^S DISEASE
     Route: 042
     Dates: start: 20130820, end: 20130820
  3. REMICADE [Suspect]
     Indication: CROHN^S DISEASE
     Route: 042
     Dates: start: 20130425, end: 20130425
  4. FLAGYL [Concomitant]
     Indication: POST PROCEDURAL INFECTION
     Route: 042
     Dates: start: 20130521, end: 20130523
  5. HARTMANN SOLUTION [Concomitant]
     Indication: ELECTROLYTE SUBSTITUTION THERAPY
     Route: 042
     Dates: start: 20130521, end: 20130521
  6. PROPOFOL [Concomitant]
     Indication: ANAESTHESIA
     Route: 042
     Dates: start: 20130521, end: 20130521
  7. VENOFER [Concomitant]
     Indication: IRON DEFICIENCY ANAEMIA
     Route: 042
     Dates: start: 20130619, end: 20130619
  8. CALCORT [Concomitant]
     Indication: CROHN^S DISEASE
     Route: 048
     Dates: start: 20130425, end: 20130502
  9. CALCORT [Concomitant]
     Indication: CROHN^S DISEASE
     Route: 048
     Dates: start: 20130619, end: 20130619
  10. CALCORT [Concomitant]
     Indication: CROHN^S DISEASE
     Route: 048
     Dates: start: 20130508, end: 20130515
  11. PENTASA [Concomitant]
     Indication: CROHN^S DISEASE
     Route: 048
     Dates: start: 20120427
  12. CEFOTAXIME [Concomitant]
     Indication: SURGERY
     Route: 042
     Dates: start: 20120521, end: 20130526
  13. CEFOTAXIME [Concomitant]
     Indication: SMALL INTESTINAL RESECTION
     Route: 042
     Dates: start: 20120521, end: 20130526
  14. CENTRUM NOS [Concomitant]
     Indication: HYPOVITAMINOSIS
     Route: 048
     Dates: start: 20120510
  15. CURAN [Concomitant]
     Indication: GASTROINTESTINAL DISORDER THERAPY
     Route: 042
     Dates: start: 20130518, end: 20130521
  16. DEXTROSE 5 % [Concomitant]
     Indication: ELECTROLYTE SUBSTITUTION THERAPY
     Route: 042
     Dates: start: 20130518, end: 20130522
  17. ESMERON [Concomitant]
     Indication: ANAESTHESIA
     Route: 042
     Dates: start: 20130521, end: 20130521
  18. FENTANYL CITRATE [Concomitant]
     Indication: PROCEDURAL PAIN
     Route: 042
     Dates: start: 20130521, end: 20130521
  19. FEROBA YOU SR [Concomitant]
     Indication: IRON DEFICIENCY ANAEMIA
     Route: 048
     Dates: start: 20120428
  20. PETHIDINE HCL [Concomitant]
     Indication: ANAESTHESIA
     Route: 042
     Dates: start: 20130521, end: 20130528
  21. MUCOPECT [Concomitant]
     Route: 042
     Dates: start: 20130521, end: 20130526
  22. NEXIUM [Concomitant]
     Indication: GASTROINTESTINAL DISORDER THERAPY
     Route: 042
     Dates: start: 20130522, end: 20130527
  23. PHENIRAMINE [Concomitant]
     Indication: ANTIALLERGIC THERAPY
     Route: 042
     Dates: start: 20130425, end: 20130425
  24. PHENIRAMINE [Concomitant]
     Indication: ANTIALLERGIC THERAPY
     Route: 042
     Dates: start: 20130619, end: 20130619
  25. SETOPAIN [Concomitant]
     Indication: ANTIPYRESIS
     Route: 048
     Dates: start: 20130619, end: 20130619
  26. SETOPAIN [Concomitant]
     Indication: ANALGESIC THERAPY
     Route: 048
     Dates: start: 20130619, end: 20130619
  27. TOTAL PARENTERAL NUTRITION [Concomitant]
     Indication: NUTRITIONAL SUPPLEMENTATION
     Route: 065
     Dates: start: 20130519, end: 20130527
  28. TOTAL PARENTERAL NUTRITION [Concomitant]
     Indication: SURGERY
     Route: 065
     Dates: start: 20130519, end: 20130527
  29. TOTAL PARENTERAL NUTRITION [Concomitant]
     Indication: SMALL INTESTINAL RESECTION
     Route: 065
     Dates: start: 20130519, end: 20130527

REACTIONS (6)
  - Crohn^s disease [Recovered/Resolved]
  - Haematochezia [Recovered/Resolved]
  - Dyspnoea [Recovered/Resolved]
  - Headache [Recovered/Resolved]
  - Nausea [Recovered/Resolved]
  - Vomiting [Recovered/Resolved]
